FAERS Safety Report 15613677 (Version 3)
Quarter: 2019Q1

REPORT INFORMATION
  Report Type: Report from Study
  Country: ES (occurrence: ES)
  Receive Date: 20181113
  Receipt Date: 20190307
  Transmission Date: 20190417
  Serious: Yes (Other)
  Sender: FDA-Public Use
  Company Number: ES-AMGEN-ESPCT2018159537

PATIENT
  Age: 64 Year
  Sex: Male

DRUGS (5)
  1. CARFILZOMIB [Concomitant]
     Active Substance: CARFILZOMIB
     Dosage: 55.8 MG, 6 DAYS MONTHLY
     Route: 042
     Dates: start: 20160825, end: 20180112
  2. LENALIDOMIDE [Concomitant]
     Active Substance: LENALIDOMIDE
     Dosage: 25 MG, 21 DAYS MONTHLY
     Dates: start: 20160825, end: 20180112
  3. ZOLEDRONIC ACID [Suspect]
     Active Substance: ZOLEDRONIC ACID
     Indication: PLASMA CELL MYELOMA
     Dosage: UNK
     Route: 065
     Dates: start: 20130828, end: 20161214
  4. DENOSUMAB [Suspect]
     Active Substance: DENOSUMAB
     Indication: PLASMA CELL MYELOMA
     Dosage: UNK
     Route: 065
     Dates: start: 20170112
  5. DEXAMETHASONE. [Concomitant]
     Active Substance: DEXAMETHASONE
     Dosage: 20 MG, QWK
     Dates: start: 20160825

REACTIONS (1)
  - Exposed bone in jaw [Not Recovered/Not Resolved]

NARRATIVE: CASE EVENT DATE: 20180726
